FAERS Safety Report 6169614-5 (Version None)
Quarter: 2009Q2

REPORT INFORMATION
  Report Type: 
  Country: None (occurrence: None)
  Receive Date: 20090424
  Receipt Date: 20081217
  Transmission Date: 20091009
  Serious: No
  Sender: FDA-Public Use
  Company Number: ALL1-2008-03241

PATIENT
  Age: 17 Year
  Sex: Male
  Weight: 70.3 kg

DRUGS (3)
  1. VYVANSE [Suspect]
     Dosage: 50 MG, 1X/DAY:QD, ORAL ; 100 MG, ONE DOSE, ORAL ; 50 MG, 1X/DAY:QD, ORAL
     Route: 048
     Dates: start: 20080923, end: 20080923
  2. VYVANSE [Suspect]
     Dosage: 50 MG, 1X/DAY:QD, ORAL ; 100 MG, ONE DOSE, ORAL ; 50 MG, 1X/DAY:QD, ORAL
     Route: 048
     Dates: start: 20080924, end: 20080924
  3. VYVANSE [Suspect]
     Dosage: 50 MG, 1X/DAY:QD, ORAL ; 100 MG, ONE DOSE, ORAL ; 50 MG, 1X/DAY:QD, ORAL
     Route: 048
     Dates: start: 20080925

REACTIONS (2)
  - ACCIDENTAL OVERDOSE [None]
  - OFF LABEL USE [None]
